FAERS Safety Report 10560705 (Version 3)
Quarter: 2014Q4

REPORT INFORMATION
  Report Type: Spontaneous
  Country: JP (occurrence: JP)
  Receive Date: 20141103
  Receipt Date: 20141125
  Transmission Date: 20150529
  Serious: Yes (Death, Hospitalization)
  Sender: FDA-Public Use
  Company Number: JP-PFIZER INC-2014300011

PATIENT
  Age: 66 Year
  Sex: Female
  Weight: 61 kg

DRUGS (1)
  1. INLYTA [Suspect]
     Active Substance: AXITINIB
     Indication: RENAL CELL CARCINOMA
     Dosage: 5 MG, 2X/DAY (10 MG DAILY)
     Route: 048
     Dates: start: 20131125, end: 20141014

REACTIONS (7)
  - Stomatitis [Not Recovered/Not Resolved]
  - Disease progression [Fatal]
  - Gastrointestinal perforation [Fatal]
  - Renal cell carcinoma [Fatal]
  - Multi-organ failure [Fatal]
  - Back pain [Not Recovered/Not Resolved]
  - Decreased appetite [Not Recovered/Not Resolved]

NARRATIVE: CASE EVENT DATE: 20141008
